FAERS Safety Report 23987251 (Version 1)
Quarter: 2024Q2

REPORT INFORMATION
  Report Type: Spontaneous
  Country: US (occurrence: None)
  Receive Date: 20240618
  Receipt Date: 20240618
  Transmission Date: 20240716
  Serious: Yes (Disabling)
  Sender: FDA-Public Use
  Company Number: None

PATIENT
  Age: 63 Year
  Sex: Male
  Weight: 98.1 kg

DRUGS (6)
  1. METFORMIN HYDROCHLORIDE [Suspect]
     Active Substance: METFORMIN HYDROCHLORIDE
     Indication: Blood glucose increased
     Dosage: 1 CAPSULE TWICE A DAY ORAL
     Route: 048
  2. PLAVIX [Concomitant]
     Active Substance: CLOPIDOGREL BISULFATE
  3. AVAPRO [Concomitant]
     Active Substance: IRBESARTAN
  4. AMLODIPINE BESYLATE [Concomitant]
     Active Substance: AMLODIPINE BESYLATE
  5. BAYER ASPIRIN [Concomitant]
     Active Substance: ASPIRIN
  6. EQUATE COMPLETE MULTIVITAMIN MEN 50+ [Concomitant]

REACTIONS (2)
  - Joint stiffness [None]
  - Blood glucose increased [None]

NARRATIVE: CASE EVENT DATE: 20230801
